FAERS Safety Report 8927073 (Version 1)
Quarter: 2012Q4

REPORT INFORMATION
  Report Type: 
  Country: PE (occurrence: PE)
  Receive Date: 20121127
  Receipt Date: 20121127
  Transmission Date: 20130627
  Serious: Yes (Other)
  Sender: FDA-Public Use
  Company Number: PE-PFIZER INC-2012296143

PATIENT
  Age: 80 Year
  Sex: Female

DRUGS (2)
  1. ACCUPRIL [Suspect]
     Indication: CARDIAC INSUFFICIENCY
     Dosage: 40 mg, UNK
     Route: 048
  2. CELEBREX [Suspect]
     Indication: ARTHROSIS
     Dosage: UNK
     Route: 048

REACTIONS (2)
  - Fall [Unknown]
  - Oedema peripheral [Unknown]
